FAERS Safety Report 5282504-5 (Version None)
Quarter: 2007Q1

REPORT INFORMATION
  Report Type: 
  Country: None (occurrence: None)
  Receive Date: 20061226
  Receipt Date: 20060830
  Transmission Date: 20070707
  Serious: Yes (Life-Threatening, Hospitalization)
  Sender: FDA-Public Use
  Company Number: 147352USA

PATIENT
  Age: 79 Year
  Sex: Male

DRUGS (5)
  1. DILTIAZEM HYDROCHLORIDE [Suspect]
     Indication: ATRIAL FIBRILLATION
     Dosage: 180 MG (60 MG,3 TIMES DAILY),ORAL
     Route: 048
     Dates: end: 20060801
  2. DILTIAZEM HYDROCHLORIDE [Suspect]
     Indication: TACHYCARDIA
     Dosage: 180 MG (60 MG,3 TIMES DAILY),ORAL
     Route: 048
     Dates: end: 20060801
  3. DILTIAZEM HYDROCHLORIDE [Suspect]
     Indication: ATRIAL FIBRILLATION
     Dosage: 180 MG (60 MG,3 TIMES DAILY),ORAL
     Route: 048
     Dates: end: 20060801
  4. DILTIAZEM HYDROCHLORIDE [Suspect]
     Indication: TACHYCARDIA
     Dosage: 180 MG (60 MG,3 TIMES DAILY),ORAL
     Route: 048
     Dates: end: 20060801
  5. METOPROLOL SUCCINATE [Concomitant]

REACTIONS (3)
  - BRADYCARDIA [None]
  - HYPOTENSION [None]
  - MEDICATION ERROR [None]
